FAERS Safety Report 11932161 (Version 2)
Quarter: 2016Q1

REPORT INFORMATION
  Report Type: Spontaneous
  Country: GB (occurrence: GB)
  Receive Date: 20160120
  Receipt Date: 20160304
  Transmission Date: 20160526
  Serious: Yes (Hospitalization)
  Sender: FDA-Public Use
  Company Number: GB-IMPAX LABORATORIES, INC-2016-IPXL-00022

PATIENT
  Age: 58 Year
  Sex: Female
  Weight: 85 kg

DRUGS (10)
  1. METFORMIN HYDROCHLORIDE ER [Suspect]
     Active Substance: METFORMIN HYDROCHLORIDE
     Indication: TYPE 2 DIABETES MELLITUS
     Dosage: UNK
     Route: 065
     Dates: start: 201306
  2. ISOPHANE INSULIN [Concomitant]
     Active Substance: INSULIN NOS
     Indication: TYPE 2 DIABETES MELLITUS
     Dosage: (10-15 UNITS), 2 /DAY
     Route: 065
     Dates: start: 201405
  3. INSUMAN COMB [Concomitant]
     Active Substance: INSULIN NOS
     Dosage: (2/2 IU)
     Route: 065
     Dates: start: 20150306
  4. DAPAGLIFLOZIN [Suspect]
     Active Substance: DAPAGLIFLOZIN
     Indication: TYPE 2 DIABETES MELLITUS
     Dosage: 10 MG, 1 /DAY
     Route: 065
  5. INSUMAN COMB [Concomitant]
     Active Substance: INSULIN NOS
     Dosage: (10/11 IU)
     Route: 065
     Dates: start: 20150208
  6. INSUMAN COMB [Concomitant]
     Active Substance: INSULIN NOS
     Indication: TYPE 2 DIABETES MELLITUS
     Dosage: UNK
     Route: 065
     Dates: start: 201407
  7. INSUMAN COMB [Concomitant]
     Active Substance: INSULIN NOS
     Dosage: (17/17 IU)
     Route: 065
     Dates: start: 20150117
  8. INSUMAN COMB [Concomitant]
     Active Substance: INSULIN NOS
     Dosage: 30 UNITS , 2 /DAY
     Route: 065
  9. INSUMAN COMB [Concomitant]
     Active Substance: INSULIN NOS
     Dosage: (30/30 IU)
     Route: 065
     Dates: start: 20150108
  10. INSUMAN COMB [Concomitant]
     Active Substance: INSULIN NOS
     Dosage: (28/27 IU)
     Route: 065
     Dates: start: 20150110

REACTIONS (3)
  - Decreased insulin requirement [Recovered/Resolved]
  - Diabetic ketoacidosis [Recovered/Resolved]
  - Hypoglycaemia [Recovering/Resolving]
